FAERS Safety Report 8836704 (Version 2)
Quarter: 2013Q1

REPORT INFORMATION
  Report Type: Spontaneous
  Country: BE (occurrence: None)
  Receive Date: 20121010
  Receipt Date: 20121220
  Transmission Date: 20140127
  Serious: Yes (Other)
  Sender: FDA-Public Use
  Company Number: BE-DEXPHARM-20121298

PATIENT
  Age: 63 Year
  Sex: Female

DRUGS (3)
  1. OMEPRAZOLE [Suspect]
     Indication: GASTROOESOPHAGEAL REFLUX DISEASE
     Dosage: MORE THAN 10 YEARS
     Dates: start: 1995
  2. PANTOPRAZOLE [Suspect]
  3. LANSOPRAZOLE [Suspect]

REACTIONS (2)
  - Drug hypersensitivity [None]
  - Prurigo [None]
